FAERS Safety Report 8612412-0 (Version None)
Quarter: 2012Q3

REPORT INFORMATION
  Report Type: 
  Country: None (occurrence: None)
  Receive Date: 20120822
  Receipt Date: 20120813
  Transmission Date: 20120928
  Serious: Yes (Hospitalization)
  Sender: FDA-Public Use
  Company Number: US-BAXTER-2012BAX012698

PATIENT
  Sex: Female

DRUGS (4)
  1. DIANEAL [Suspect]
     Route: 033
     Dates: start: 20120713
  2. DIANEAL [Suspect]
     Route: 033
  3. DIANEAL [Suspect]
     Indication: PERITONEAL DIALYSIS
     Route: 033
  4. DIANEAL [Suspect]
     Route: 033
     Dates: start: 20120713

REACTIONS (7)
  - HERNIA [None]
  - PROCEDURAL PAIN [None]
  - PERITONEAL DIALYSIS COMPLICATION [None]
  - AGITATION [None]
  - ABDOMINAL DISCOMFORT [None]
  - HERNIA PAIN [None]
  - PAIN [None]
